FAERS Safety Report 19937890 (Version 1)
Quarter: 2021Q4

REPORT INFORMATION
  Report Type: Spontaneous
  Country: US (occurrence: US)
  Receive Date: 20211011
  Receipt Date: 20211011
  Transmission Date: 20220303
  Serious: No
  Sender: FDA-Public Use
  Company Number: US-ROCHE-2827876

PATIENT
  Age: 2 Year
  Sex: Male
  Weight: 16.57 kg

DRUGS (9)
  1. EVRYSDI [Suspect]
     Active Substance: RISDIPLAM
     Indication: Spinal muscular atrophy
     Dosage: VIA G-TUBE
     Route: 065
     Dates: start: 20200911
  2. IPRATROPIUM BROMIDE [Concomitant]
     Active Substance: IPRATROPIUM BROMIDE
     Dosage: 0.5MG/2.5ML VIA NEBULIZER
     Dates: start: 20200413
  3. CUVPOSA [GLYCOPYRRONIUM] [Concomitant]
     Dosage: 1MG/5ML 2-3ML EVERY 6 HOURS VIA G-TUBE
     Dates: start: 20190927
  4. FLONASE [Concomitant]
     Active Substance: FLUTICASONE PROPIONATE
     Indication: Hypersensitivity
     Dosage: ONE-PUFF
     Dates: start: 20200413
  5. FLONASE [Concomitant]
     Active Substance: FLUTICASONE PROPIONATE
     Indication: Rhinorrhoea
  6. ZYRTEC [Concomitant]
     Active Substance: CETIRIZINE HYDROCHLORIDE
     Dosage: VIA G-TUBE
     Dates: start: 20200413
  7. SILACE [Concomitant]
     Active Substance: DOCUSATE SODIUM
     Indication: Constipation
     Dosage: 50MG/5ML, 1ML TWICE A DAY PRN VIA G-TUBE
     Dates: start: 2018
  8. TYLENOL [Concomitant]
     Active Substance: ACETAMINOPHEN
     Indication: Discomfort
     Dosage: 6ML EVERY 4-6 HOURS PRN VIA G-TUBE
     Dates: start: 2018
  9. MOTRIN [Concomitant]
     Active Substance: IBUPROFEN
     Indication: Discomfort
     Dosage: 6.5ML EVERY 6-8 HOURS PRN VIA G-TUBE
     Dates: start: 2018

REACTIONS (4)
  - Underdose [Recovered/Resolved]
  - Product dose omission issue [Unknown]
  - No adverse event [Unknown]
  - Product container issue [Unknown]

NARRATIVE: CASE EVENT DATE: 20210505
